FAERS Safety Report 15704832 (Version 1)
Quarter: 2018Q4

REPORT INFORMATION
  Report Type: Spontaneous
  Country: US (occurrence: US)
  Receive Date: 20181210
  Receipt Date: 20181210
  Transmission Date: 20190205
  Serious: No
  Sender: FDA-Public Use
  Company Number: US-SA-2018SA331098

PATIENT
  Age: 61 Year
  Sex: Female

DRUGS (1)
  1. LOVENOX [Suspect]
     Active Substance: ENOXAPARIN SODIUM
     Indication: THROMBOSIS
     Dosage: 0.93 ML, Q12H
     Route: 065

REACTIONS (3)
  - Injection site pruritus [Unknown]
  - Injection site bruising [Unknown]
  - Injection site pain [Unknown]
